FAERS Safety Report 4765215-1 (Version None)
Quarter: 2005Q3

REPORT INFORMATION
  Report Type: 
  Country: None (occurrence: None)
  Receive Date: 20050906
  Receipt Date: 20050822
  Transmission Date: 20060218
  Serious: Yes (Life-Threatening, Other)
  Sender: FDA-Public Use
  Company Number: 2005119156

PATIENT
  Age: 53 Year
  Sex: Male
  Weight: 52 kg

DRUGS (6)
  1. NEURONTIN [Suspect]
     Indication: GENERAL SYMPTOM
     Dosage: 300 MG (300 MG, 1 IN 1 D), ORAL
     Route: 048
     Dates: start: 20050518, end: 20050522
  2. PLITICAN (ALIZAPRIDE HYDROCHLORIDE) [Suspect]
     Indication: NAUSEA
     Dosage: 50 MG, INTRAVENOUS
     Route: 042
     Dates: start: 20050519, end: 20050520
  3. DURAGESIC-100 [Suspect]
     Indication: GENERAL SYMPTOM
     Dosage: 50 MCG (2 IN 1 D), TOPICAL
     Route: 061
     Dates: start: 20050517, end: 20050519
  4. TRAMADOL HCL [Suspect]
     Indication: GENERAL SYMPTOM
     Dosage: 300 MG, INTRAVENOUS
     Route: 042
     Dates: start: 20050515, end: 20050522
  5. SPASFON (PHLOROGLUCINOL, TRIMETHYLPHLOROGLUCINOL) [Concomitant]
  6. IMODIUM [Concomitant]

REACTIONS (8)
  - ACIDOSIS HYPERCHLORAEMIC [None]
  - BLADDER OPERATION [None]
  - CEREBRAL HAEMORRHAGE [None]
  - FUNGAL SEPSIS [None]
  - GASTROINTESTINAL DISORDER [None]
  - GRAND MAL CONVULSION [None]
  - INJURY [None]
  - METABOLIC ACIDOSIS [None]
